FAERS Safety Report 12407169 (Version 7)
Quarter: 2016Q3

REPORT INFORMATION
  Report Type: Report from Study
  Country: US (occurrence: US)
  Receive Date: 20160526
  Receipt Date: 20160922
  Transmission Date: 20161109
  Serious: Yes (Other)
  Sender: FDA-Public Use
  Company Number: US-BAYER-2016-092292

PATIENT
  Age: 61 Year
  Sex: Male

DRUGS (2)
  1. NEXAVAR [Suspect]
     Active Substance: SORAFENIB
     Indication: METASTASES TO LIVER
     Dosage: 200 MG, QD
     Route: 048
     Dates: start: 20160525, end: 20160707
  2. NEXAVAR [Suspect]
     Active Substance: SORAFENIB
     Indication: HEPATOCELLULAR CARCINOMA
     Dosage: 400 MG, QD (EVERY BED TIME)
     Route: 048
     Dates: start: 20160507, end: 20160524

REACTIONS (31)
  - Fatigue [None]
  - Asthenia [None]
  - Weight decreased [None]
  - Blood bilirubin increased [None]
  - Insomnia [None]
  - Gait disturbance [None]
  - Infected dermal cyst [None]
  - Abdominal distension [None]
  - Confusional state [None]
  - Feeling abnormal [None]
  - Tongue discolouration [None]
  - Oedema peripheral [None]
  - Hepatic function abnormal [None]
  - Abdominal distension [None]
  - Blood bilirubin increased [None]
  - Constipation [None]
  - Decreased appetite [None]
  - Abdominal pain [None]
  - Cough [None]
  - Abdominal pain [None]
  - Weight decreased [None]
  - Erythema [None]
  - Decreased appetite [None]
  - Hepatocellular carcinoma [None]
  - Blood bilirubin increased [None]
  - Vomiting [None]
  - Fatigue [None]
  - Tumour marker increased [None]
  - Abdominal pain [None]
  - Poor quality sleep [None]
  - Gastrooesophageal reflux disease [None]

NARRATIVE: CASE EVENT DATE: 2016
